FAERS Safety Report 24211119 (Version 1)
Quarter: 2024Q3

REPORT INFORMATION
  Report Type: Spontaneous
  Country: US (occurrence: None)
  Receive Date: 20240814
  Receipt Date: 20240814
  Transmission Date: 20241017
  Serious: Yes (Death)
  Sender: Public
  Company Number: None

PATIENT
  Age: 59 Year
  Sex: Female

DRUGS (1)
  1. LENVIMA [Suspect]
     Active Substance: LENVATINIB
     Indication: Neoplasm malignant
     Dosage: 10MG DAILY ORAL
     Route: 048
     Dates: start: 20230830, end: 20240104

REACTIONS (1)
  - Disease progression [None]

NARRATIVE: CASE EVENT DATE: 20240801
